FAERS Safety Report 8884666 (Version 1)
Quarter: 2012Q4

REPORT INFORMATION
  Report Type: 
  Country: US (occurrence: US)
  Receive Date: 20121102
  Receipt Date: 20121102
  Transmission Date: 20130627
  Serious: Yes (Death, Other)
  Sender: FDA-Public Use
  Company Number: US-ELI_LILLY_AND_COMPANY-US201211000295

PATIENT

DRUGS (11)
  1. GEMCITABINE HYDROCHLORIDE [Suspect]
     Indication: MALIGNANT LYMPHOID NEOPLASM
     Dosage: 75 mg/m2, other
  2. BUSULFAN [Concomitant]
     Indication: MALIGNANT LYMPHOID NEOPLASM
     Dosage: 32 mg/m2, single
  3. BUSULFAN [Concomitant]
  4. MELPHALAN [Concomitant]
     Indication: MALIGNANT LYMPHOID NEOPLASM
     Dosage: 60 mg/m2, UNK
  5. OTHER BLOOD PRODUCTS [Concomitant]
     Indication: MALIGNANT LYMPHOID NEOPLASM
     Dosage: UNK, single
  6. RITUXIMAB [Concomitant]
     Indication: MALIGNANT LYMPHOID NEOPLASM
     Dosage: UNK, other
  7. PHENYTOIN [Concomitant]
  8. PALIFERMIN [Concomitant]
     Indication: PROPHYLAXIS
     Dosage: UNK UNK, other
     Route: 042
  9. NORMAL SALINE [Concomitant]
  10. CAPHOSOL [Concomitant]
     Dosage: 30 ml, qid
  11. GLUTAMINE [Concomitant]
     Indication: PROPHYLAXIS
     Dosage: 15 g, qid

REACTIONS (2)
  - Sepsis [Fatal]
  - Mucosal inflammation [Not Recovered/Not Resolved]
